FAERS Safety Report 14835325 (Version 1)
Quarter: 2018Q2

REPORT INFORMATION
  Report Type: Spontaneous
  Country: GB (occurrence: GB)
  Receive Date: 20180502
  Receipt Date: 20180502
  Transmission Date: 20180711
  Serious: Yes (Other)
  Sender: FDA-Public Use
  Company Number: GB-BIOGEN-2017BI00392183

PATIENT
  Age: 70 Year
  Sex: Male

DRUGS (3)
  1. FAMPYRA [Suspect]
     Active Substance: DALFAMPRIDINE
     Indication: MULTIPLE SCLEROSIS
     Route: 048
     Dates: start: 20161103
  2. FAMPYRA [Suspect]
     Active Substance: DALFAMPRIDINE
     Route: 048
  3. FAMPYRA [Suspect]
     Active Substance: DALFAMPRIDINE
     Route: 048

REACTIONS (4)
  - Gait disturbance [Unknown]
  - Osteonecrosis [Not Recovered/Not Resolved]
  - Intentional product misuse [Recovered/Resolved]
  - Musculoskeletal disorder [Unknown]

NARRATIVE: CASE EVENT DATE: 20180320
